FAERS Safety Report 6293360-0 (Version None)
Quarter: 2009Q3

REPORT INFORMATION
  Report Type: 
  Country: None (occurrence: None)
  Receive Date: 20090731
  Receipt Date: 20090724
  Transmission Date: 20100115
  Serious: Yes (Other)
  Sender: FDA-Public Use
  Company Number: US-ALLERGAN-0910340US

PATIENT
  Age: 86 Year
  Sex: Female

DRUGS (4)
  1. BOTOX [Suspect]
     Indication: TORTICOLLIS
     Dosage: UNK, SINGLE
     Route: 030
     Dates: start: 20090708, end: 20090708
  2. SYNTHROID [Concomitant]
     Dosage: 50 MG, QD
  3. KLONOPIN [Concomitant]
  4. ACIPHEX [Concomitant]
     Dosage: 20 MG, QD

REACTIONS (1)
  - MUSCULAR WEAKNESS [None]
